FAERS Safety Report 23262012 (Version 3)
Quarter: 2024Q1

REPORT INFORMATION
  Report Type: Report from Study
  Country: US (occurrence: US)
  Receive Date: 20231205
  Receipt Date: 20240312
  Transmission Date: 20240409
  Serious: Yes (Hospitalization, Other)
  Sender: FDA-Public Use
  Company Number: US-GILEAD-2023-0653000

PATIENT
  Age: 51 Year
  Sex: Male

DRUGS (4)
  1. AZTREONAM LYSINE [Suspect]
     Active Substance: AZTREONAM LYSINE
     Indication: Cystic fibrosis lung
     Dosage: 75 MG, TID [INHALE 1 ML VIAL (75 MG TOTAL) VIA ALTERA NEBULIZER THREE TIMES A DAY FOR 28 DAYS, EVERY
     Route: 055
  2. TRIKAFTA [Concomitant]
     Active Substance: ELEXACAFTOR\IVACAFTOR\TEZACAFTOR
     Indication: Cystic fibrosis lung
     Dosage: 100/50/75 MG AND 150 MG TAB 21S
     Route: 065
  3. GABAPENTIN [Concomitant]
     Active Substance: GABAPENTIN
     Dosage: UNK
     Route: 065
  4. PULMOZYME [Concomitant]
     Active Substance: DORNASE ALFA
     Dosage: UNK
     Route: 065

REACTIONS (2)
  - Cystic fibrosis [Unknown]
  - Illness [Unknown]

NARRATIVE: CASE EVENT DATE: 20231101
